FAERS Safety Report 8028358-5 (Version None)
Quarter: 2012Q1

REPORT INFORMATION
  Report Type: 
  Country: None (occurrence: None)
  Receive Date: 20120106
  Receipt Date: 20111223
  Transmission Date: 20120608
  Serious: Yes (Other)
  Sender: FDA-Public Use
  Company Number: FR-WATSON-2011-22619

PATIENT
  Age: 71 Year
  Sex: Female

DRUGS (2)
  1. PREDNISONE TAB [Suspect]
     Indication: WEGENER'S GRANULOMATOSIS
     Dosage: 5 MG
  2. AZATHIOPRINE [Suspect]
     Indication: WEGENER'S GRANULOMATOSIS
     Dosage: 100 MG DAILY
     Dates: start: 19990301

REACTIONS (14)
  - JC VIRUS INFECTION [None]
  - NEUTROPENIA [None]
  - FEMUR FRACTURE [None]
  - SCLERITIS [None]
  - PROGRESSIVE MULTIFOCAL LEUKOENCEPHALOPATHY [None]
  - FALL [None]
  - CEREBRAL ISCHAEMIA [None]
  - COMA [None]
  - VASCULITIS CEREBRAL [None]
  - EPISTAXIS [None]
  - LEUKOENCEPHALOPATHY [None]
  - RENAL FAILURE [None]
  - RHINITIS [None]
  - DIARRHOEA [None]
